FAERS Safety Report 19056521 (Version 1)
Quarter: 2021Q1

REPORT INFORMATION
  Report Type: Spontaneous
  Country: US (occurrence: US)
  Receive Date: 20210325
  Receipt Date: 20210325
  Transmission Date: 20210420
  Serious: No
  Sender: FDA-Public Use
  Company Number: US-GLAXOSMITHKLINE-US2021065050

PATIENT
  Sex: Female

DRUGS (2)
  1. BENLYSTA [Suspect]
     Active Substance: BELIMUMAB
     Indication: PRODUCT USED FOR UNKNOWN INDICATION
     Dosage: UNK
     Dates: start: 202102
  2. BENLYSTA [Concomitant]
     Active Substance: BELIMUMAB
     Indication: PRODUCT USED FOR UNKNOWN INDICATION
     Dosage: UNK
     Dates: start: 202006, end: 202102

REACTIONS (7)
  - Injection site pruritus [Not Recovered/Not Resolved]
  - Skin discolouration [Unknown]
  - Livedo reticularis [Unknown]
  - Eczema [Not Recovered/Not Resolved]
  - Skin exfoliation [Unknown]
  - Pityriasis rosea [Unknown]
  - Injection site erythema [Not Recovered/Not Resolved]
